FAERS Safety Report 16541719 (Version 1)
Quarter: 2019Q3

REPORT INFORMATION
  Report Type: Spontaneous
  Country: FR (occurrence: FR)
  Receive Date: 20190708
  Receipt Date: 20190708
  Transmission Date: 20191004
  Serious: Yes (Other)
  Sender: FDA-Public Use
  Company Number: US-BRAINTREE LABORATORIES-190373

PATIENT
  Age: 51 Year
  Sex: Male

DRUGS (1)
  1. EZICLEN [Suspect]
     Active Substance: MAGNESIUM SULFATE\POTASSIUM SULFATE\SODIUM SULFATE
     Indication: COLONOSCOPY
     Route: 048
     Dates: start: 20190612, end: 20190613

REACTIONS (10)
  - Dizziness [None]
  - Nuchal rigidity [None]
  - Asthenia [None]
  - Abdominal pain [None]
  - Nausea [None]
  - Headache [None]
  - Myalgia [None]
  - Skin burning sensation [None]
  - Arthralgia [None]
  - Drug ineffective [None]

NARRATIVE: CASE EVENT DATE: 20190612
